FAERS Safety Report 16014516 (Version 2)
Quarter: 2019Q1

REPORT INFORMATION
  Report Type: Spontaneous
  Country: US (occurrence: US)
  Receive Date: 20190227
  Receipt Date: 20190318
  Transmission Date: 20190418
  Serious: Yes (Other)
  Sender: FDA-Public Use
  Company Number: US-BAUSCH-BL-2019-005768

PATIENT
  Sex: Female

DRUGS (9)
  1. METRONIDAZOLE. [Suspect]
     Active Substance: METRONIDAZOLE
     Route: 048
  2. METRONIDAZOLE. [Suspect]
     Active Substance: METRONIDAZOLE
     Dosage: ALONG WITH INTRAVAGINAL METRONIDAZOLE
     Route: 048
  3. METRONIDAZOLE. [Suspect]
     Active Substance: METRONIDAZOLE
     Route: 048
  4. METRONIDAZOLE. [Suspect]
     Active Substance: METRONIDAZOLE
     Indication: TRICHOMONIASIS
     Dosage: SINGLE DOSE
     Route: 048
  5. TINIDAZOLE. [Suspect]
     Active Substance: TINIDAZOLE
     Indication: TRICHOMONIASIS
     Route: 048
  6. METRONIDAZOLE. [Suspect]
     Active Substance: METRONIDAZOLE
     Indication: TRICHOMONIASIS
     Route: 067
  7. TINIDAZOLE. [Suspect]
     Active Substance: TINIDAZOLE
     Route: 048
  8. TINIDAZOLE. [Suspect]
     Active Substance: TINIDAZOLE
     Route: 048
  9. TINIDAZOLE. [Suspect]
     Active Substance: TINIDAZOLE
     Dosage: ADMINISTERED ONCE
     Route: 048

REACTIONS (1)
  - Pathogen resistance [Unknown]
